FAERS Safety Report 6430910-5 (Version None)
Quarter: 2009Q4

REPORT INFORMATION
  Report Type: 
  Country: None (occurrence: None)
  Receive Date: 20091106
  Receipt Date: 20091102
  Transmission Date: 20100525
  Serious: Yes (Life-Threatening, Hospitalization)
  Sender: FDA-Public Use
  Company Number: US-MERCK-0910USA03093

PATIENT
  Age: 46 Year
  Sex: Female

DRUGS (4)
  1. ISENTRESS [Suspect]
     Indication: HIV INFECTION
     Route: 048
     Dates: start: 20090723, end: 20090928
  2. FTC [Concomitant]
     Route: 065
  3. SUSTIVA [Concomitant]
     Route: 065
  4. ANTIMICROBIAL (UNSPECIFIED) [Concomitant]
     Route: 065

REACTIONS (4)
  - DIZZINESS [None]
  - FATIGUE [None]
  - NEPHROPATHY TOXIC [None]
  - RENAL FAILURE [None]
